FAERS Safety Report 6071839-4 (Version None)
Quarter: 2009Q1

REPORT INFORMATION
  Report Type: 
  Country: None (occurrence: None)
  Receive Date: 20090210
  Receipt Date: 20090204
  Transmission Date: 20090719
  Serious: Yes (Other)
  Sender: FDA-Public Use
  Company Number: PHBS2009GB00756

PATIENT

DRUGS (4)
  1. DICLOFENAC [Suspect]
  2. WARFARIN SODIUM [Suspect]
  3. SIMVASTATIN [Suspect]
  4. PREDNISOLONE [Suspect]

REACTIONS (3)
  - CONTUSION [None]
  - FALL [None]
  - INTERNATIONAL NORMALISED RATIO INCREASED [None]
